FAERS Safety Report 9487063 (Version 2)
Quarter: 2013Q3

REPORT INFORMATION
  Report Type: Report from Study
  Country: FR (occurrence: FR)
  Receive Date: 20130829
  Receipt Date: 20130829
  Transmission Date: 20140515
  Serious: Yes (Hospitalization)
  Sender: FDA-Public Use
  Company Number: PHHO2010FR02716

PATIENT
  Age: 50 Year
  Sex: Male
  Weight: 65 kg

DRUGS (3)
  1. ALISKIREN [Suspect]
     Indication: CARDIOVASCULAR DISORDER
     Route: 048
     Dates: start: 20081028
  2. TARDYFERON [Concomitant]
     Indication: RENAL FAILURE
  3. FOLIC ACID [Concomitant]
     Indication: RENAL FAILURE

REACTIONS (3)
  - Diabetes mellitus inadequate control [Recovering/Resolving]
  - Concomitant disease progression [Recovering/Resolving]
  - Malaise [Recovering/Resolving]
